FAERS Safety Report 9013760 (Version 1)
Quarter: 2013Q1

REPORT INFORMATION
  Report Type: Spontaneous
  Country: US (occurrence: None)
  Receive Date: 20130108
  Receipt Date: 20130108
  Transmission Date: 20140127
  Serious: Yes (Life-Threatening)
  Sender: FDA-Public Use
  Company Number: None

PATIENT
  Age: 67 Year
  Sex: Female
  Weight: 90.72 kg

DRUGS (1)
  1. LEVOTHYROXINE [Suspect]
     Indication: HYPOTHYROIDISM
     Dosage: 25 MCG FOR 1 MO. DAY
     Dates: start: 20101222, end: 20110123

REACTIONS (6)
  - Swelling face [None]
  - Lip swelling [None]
  - Gingival swelling [None]
  - Economic problem [None]
  - Product substitution issue [None]
  - Unevaluable event [None]
